FAERS Safety Report 5930267-X (Version None)
Quarter: 2008Q4

REPORT INFORMATION
  Report Type: 
  Country: None (occurrence: None)
  Receive Date: 20081009
  Receipt Date: 20080428
  Transmission Date: 20090506
  Serious: Yes (Other)
  Sender: FDA-Public Use
  Company Number: PHEH2008US03332

PATIENT
  Age: 55 Year
  Sex: Male
  Weight: 111.1 kg

DRUGS (6)
  1. ZOMETA [Suspect]
     Indication: MULTIPLE MYELOMA
     Dosage: 4 MG, QMO, INTRAVENOUS
     Route: 042
     Dates: start: 20070316, end: 20071107
  2. REVLIMID [Suspect]
     Indication: MULTIPLE MYELOMA
     Dosage: 25MG QD 21 OF 28 DAYS, ORAL
     Route: 048
     Dates: start: 20070611, end: 20080227
  3. DEXAMETHASONE TAB [Concomitant]
  4. LISINOPRIL [Concomitant]
  5. JANUVIA (SITAGLIPTIN PHOSPHATE) [Concomitant]
  6. DARVOCET-N 100 [Concomitant]

REACTIONS (5)
  - DRUG HYPERSENSITIVITY [None]
  - GINGIVAL INFECTION [None]
  - GINGIVAL RECESSION [None]
  - OSTEONECROSIS [None]
  - PAIN IN JAW [None]
